FAERS Safety Report 13207325 (Version 1)
Quarter: 2017Q1

REPORT INFORMATION
  Report Type: Spontaneous
  Country: US (occurrence: US)
  Receive Date: 20170209
  Receipt Date: 20170209
  Transmission Date: 20170428
  Serious: No
  Sender: FDA-Public Use
  Company Number: US-SA-2016SA237843

PATIENT
  Sex: Female

DRUGS (18)
  1. HYDROCHLOROT [Concomitant]
     Active Substance: HYDROCHLOROTHIAZIDE
  2. HYDROCODONE BITARTRATE AND ACETAMINOPHEN [Concomitant]
     Active Substance: ACETAMINOPHEN\HYDROCODONE BITARTRATE
     Dosage: 7.5/325 MG : DOSE
  3. PENTOXIFYLLINE. [Concomitant]
     Active Substance: PENTOXIFYLLINE
     Dosage: ER
  4. ZETIA [Concomitant]
     Active Substance: EZETIMIBE
  5. SOLOSTAR [Concomitant]
     Active Substance: DEVICE
  6. ALIROCUMAB PREFILLED PEN [Concomitant]
     Active Substance: ALIROCUMAB
     Dates: start: 201606
  7. CARVEDILOL. [Concomitant]
     Active Substance: CARVEDILOL
  8. CLOPIDOGREL [Concomitant]
     Active Substance: CLOPIDOGREL BISULFATE
  9. COLESTIPOL [Concomitant]
     Active Substance: COLESTIPOL
  10. LANTUS SOLOSTAR [Concomitant]
     Active Substance: INSULIN GLARGINE
  11. ONDANSETRON [Concomitant]
     Active Substance: ONDANSETRON
  12. ISOSORBIDE MONONITRATE. [Concomitant]
     Active Substance: ISOSORBIDE MONONITRATE
  13. ALENDRONATE [Concomitant]
     Active Substance: ALENDRONATE SODIUM
  14. CEPHALEXIN. [Concomitant]
     Active Substance: CEPHALEXIN
  15. CITALOPRAM [Concomitant]
     Active Substance: CITALOPRAM HYDROBROMIDE
  16. TRADJENTA [Concomitant]
     Active Substance: LINAGLIPTIN
  17. DIAZEPAM. [Concomitant]
     Active Substance: DIAZEPAM
  18. PRALUENT [Suspect]
     Active Substance: ALIROCUMAB
     Route: 065
     Dates: start: 201606, end: 201610

REACTIONS (2)
  - Rash [Unknown]
  - Pruritus generalised [Unknown]
